FAERS Safety Report 7815111-8 (Version None)
Quarter: 2011Q4

REPORT INFORMATION
  Report Type: 
  Country: None (occurrence: None)
  Receive Date: 20111014
  Receipt Date: 20111003
  Transmission Date: 20120403
  Serious: Yes (Hospitalization)
  Sender: FDA-Public Use
  Company Number: JP-JNJFOC-20110408408

PATIENT
  Age: 31 Year
  Sex: Male
  Weight: 60 kg

DRUGS (13)
  1. TAMIFLU [Concomitant]
     Indication: ADVERSE EVENT
     Route: 048
     Dates: start: 20110302, end: 20110307
  2. REMICADE [Suspect]
     Dosage: TOTAL 2 INFUSIONS
     Route: 042
     Dates: start: 20110203
  3. ISONIAZID [Suspect]
     Indication: ANTIBIOTIC PROPHYLAXIS
     Route: 048
     Dates: start: 20110203, end: 20110426
  4. CALCIUM CARBONATE [Concomitant]
     Indication: PROPHYLAXIS
     Route: 048
     Dates: start: 20110203, end: 20110308
  5. REMICADE [Suspect]
     Indication: ANKYLOSING SPONDYLITIS
     Route: 042
     Dates: start: 20110121
  6. ISONIAZID [Suspect]
     Dosage: 300DF
     Route: 048
     Dates: start: 20110519, end: 20110808
  7. NON STEROIDAL ANTI-INFLAMMATORY DRUGS [Concomitant]
     Indication: ANKYLOSING SPONDYLITIS
  8. ISONIAZID [Suspect]
     Dosage: 100DF
     Route: 048
     Dates: start: 20110513
  9. PYDOXAL [Concomitant]
     Indication: PROPHYLAXIS
     Route: 048
     Dates: start: 20110203
  10. ZYRTEC [Concomitant]
     Indication: PROPHYLAXIS
     Route: 048
     Dates: start: 20110203, end: 20110308
  11. ISONIAZID [Suspect]
     Dosage: 50DF
     Route: 048
     Dates: start: 20110510
  12. ALFAROL [Concomitant]
     Indication: PROPHYLAXIS
     Dosage: 0.25 RG DAILY
     Route: 048
     Dates: start: 20110203, end: 20110308
  13. ISONIAZID [Suspect]
     Dosage: 200DF
     Route: 048
     Dates: start: 20110516

REACTIONS (1)
  - LYMPH NODE TUBERCULOSIS [None]
